FAERS Safety Report 24631776 (Version 1)
Quarter: 2024Q4

REPORT INFORMATION
  Report Type: Report from Study
  Country: GB (occurrence: GB)
  Receive Date: 20241118
  Receipt Date: 20241118
  Transmission Date: 20250115
  Serious: Yes (Other)
  Sender: ABBVIE
  Company Number: GB-ABBVIE-6003307

PATIENT
  Age: 51 Year
  Sex: Female
  Weight: 105 kg

DRUGS (1)
  1. SKYRIZI [Suspect]
     Active Substance: RISANKIZUMAB-RZAA
     Indication: Psoriasis
     Route: 058
     Dates: start: 20230323

REACTIONS (1)
  - Precancerous cells present [Unknown]

NARRATIVE: CASE EVENT DATE: 20240214
